FAERS Safety Report 17875584 (Version 1)
Quarter: 2020Q2

REPORT INFORMATION
  Report Type: Spontaneous
  Country: US (occurrence: US)
  Receive Date: 20200609
  Receipt Date: 20200609
  Transmission Date: 20200714
  Serious: Yes (Other)
  Sender: FDA-Public Use
  Company Number: None

PATIENT
  Age: 81 Year
  Sex: Female
  Weight: 73.35 kg

DRUGS (3)
  1. MUPIROCIN OINTMENT 2% [Suspect]
     Active Substance: MUPIROCIN
     Indication: SKIN INFECTION
     Dosage: ?          QUANTITY:1 SMALL AMOUNT;?
     Route: 061
     Dates: start: 20200518, end: 20200521
  2. MELATONIN [Concomitant]
     Active Substance: MELATONIN
  3. VITAMIN D [Concomitant]
     Active Substance: VITAMIN D NOS

REACTIONS (4)
  - Urticaria [None]
  - Diarrhoea [None]
  - Pruritus [None]
  - Skin injury [None]

NARRATIVE: CASE EVENT DATE: 20200518
